FAERS Safety Report 24055016 (Version 1)
Quarter: 2024Q3

REPORT INFORMATION
  Report Type: Spontaneous
  Country: US (occurrence: None)
  Receive Date: 20240703
  Receipt Date: 20240703
  Transmission Date: 20241016
  Serious: Yes (Other)
  Sender: Public
  Company Number: None

PATIENT
  Age: 30 Year
  Sex: Female
  Weight: 107.55 kg

DRUGS (5)
  1. BUPROPION [Suspect]
     Active Substance: BUPROPION
     Indication: Weight control
     Dates: start: 20240622, end: 20240702
  2. NALTREXONE HYDROCHLORIDE [Suspect]
     Active Substance: NALTREXONE HYDROCHLORIDE
     Dates: start: 20240622, end: 20240702
  3. SPIRONOLACTONE [Concomitant]
     Active Substance: SPIRONOLACTONE
  4. ALBUTEROL [Concomitant]
     Active Substance: ALBUTEROL
  5. VITAMIN B12 [Suspect]
     Active Substance: CYANOCOBALAMIN

REACTIONS (2)
  - Hypersensitivity [None]
  - Urticaria [None]

NARRATIVE: CASE EVENT DATE: 20240702
